FAERS Safety Report 11021312 (Version 1)
Quarter: 2015Q2

REPORT INFORMATION
  Report Type: Report from Study
  Country: PL (occurrence: PL)
  Receive Date: 20150413
  Receipt Date: 20150413
  Transmission Date: 20150821
  Serious: Yes (Other)
  Sender: FDA-Public Use
  Company Number: PL-UCBSA-2015002794

PATIENT
  Age: 69 Year
  Sex: Female
  Weight: 61 kg

DRUGS (8)
  1. METOPROLOL [Concomitant]
     Active Substance: METOPROLOL
     Indication: HYPERTENSION
     Dosage: 25 MG, 2X/DAY (BID)
     Route: 048
     Dates: start: 201005
  2. *ADALIMUMAB [Suspect]
     Active Substance: ADALIMUMAB
     Indication: RHEUMATOID ARTHRITIS
     Dosage: 40 MG, NO OF DOSES RECEIVED: 50
     Route: 058
     Dates: start: 20130925, end: 20141020
  3. PIRAMIL [Concomitant]
     Indication: HYPERTENSION
     Dosage: 5 MG, ONCE DAILY (QD)
     Route: 048
     Dates: start: 201005
  4. VIGANTOLETTEN [Concomitant]
     Active Substance: CHOLECALCIFEROL
     Indication: OSTEOPENIA
     Dosage: 1000 MG, ONCE DAILY (QD)
     Route: 048
     Dates: start: 20110113
  5. METHOTREXATE [Concomitant]
     Active Substance: METHOTREXATE
     Indication: RHEUMATOID ARTHRITIS
     Dosage: 25 MG,QS
     Route: 048
     Dates: start: 20120628
  6. CALPEROS [Concomitant]
     Active Substance: CALCIUM CARBONATE
     Indication: OSTEOPENIA
     Dosage: 1000 MG, ONCE DAILY (QD)
     Route: 048
     Dates: start: 20110113
  7. FOLIC ACID. [Concomitant]
     Active Substance: FOLIC ACID
     Indication: RHEUMATOID ARTHRITIS
     Dosage: 15 MG, QS
     Route: 048
     Dates: start: 201101
  8. OSTENIL [Concomitant]
     Indication: OSTEOPENIA
     Dosage: 70 MG, QS
     Route: 048
     Dates: start: 20110113

REACTIONS (1)
  - Tuberculosis [Not Recovered/Not Resolved]

NARRATIVE: CASE EVENT DATE: 20140922
